FAERS Safety Report 12621657 (Version 4)
Quarter: 2016Q4

REPORT INFORMATION
  Report Type: Report from Study
  Country: US (occurrence: US)
  Receive Date: 20160804
  Receipt Date: 20161028
  Transmission Date: 20170207
  Serious: Yes (Other)
  Sender: FDA-Public Use
  Company Number: US-GILEAD-2016-0206616

PATIENT
  Age: 58 Year
  Sex: Female

DRUGS (4)
  1. REVATIO [Suspect]
     Active Substance: SILDENAFIL CITRATE
     Indication: PRODUCT USED FOR UNKNOWN INDICATION
     Route: 065
  2. COUMADIN [Concomitant]
     Active Substance: WARFARIN SODIUM
  3. AMBRISENTAN [Suspect]
     Active Substance: AMBRISENTAN
     Indication: PRODUCT USED FOR UNKNOWN INDICATION
     Dosage: 10 MG, QD
     Route: 065
     Dates: start: 20130715
  4. WARFARIN [Concomitant]
     Active Substance: WARFARIN

REACTIONS (21)
  - Laceration [Unknown]
  - Joint injury [Unknown]
  - Productive cough [Not Recovered/Not Resolved]
  - Fall [Unknown]
  - Haemoptysis [Not Recovered/Not Resolved]
  - Dizziness [Unknown]
  - Hypotension [Unknown]
  - Syncope [Unknown]
  - Face injury [Unknown]
  - Loss of consciousness [Unknown]
  - Gait disturbance [Unknown]
  - Contusion [Unknown]
  - Lymphadenopathy [Not Recovered/Not Resolved]
  - Injury [Unknown]
  - Viral infection [Not Recovered/Not Resolved]
  - Oral mucosal blistering [Not Recovered/Not Resolved]
  - Sinus congestion [Unknown]
  - Visual acuity reduced [Unknown]
  - Loss of consciousness [Unknown]
  - Diplopia [Unknown]
  - Lip swelling [Not Recovered/Not Resolved]

NARRATIVE: CASE EVENT DATE: 201610
